FAERS Safety Report 8957076 (Version 1)
Quarter: 2012Q4

REPORT INFORMATION
  Report Type: Spontaneous
  Country: US (occurrence: None)
  Receive Date: 20121205
  Receipt Date: 20121205
  Transmission Date: 20130627
  Serious: Yes (Life-Threatening, Hospitalization)
  Sender: FDA-Public Use
  Company Number: None

PATIENT
  Age: 78 Year
  Sex: Male
  Weight: 95.26 kg

DRUGS (2)
  1. TAMSOLUOSIN [Suspect]
     Indication: POSTOPERATIVE CARE
     Dosage: 1 TABLET HS PO
     Route: 048
     Dates: start: 20111120, end: 20111121
  2. TAMSOLUOSIN [Suspect]
     Indication: CRYOTHERAPY
     Dosage: 1 TABLET HS PO
     Route: 048
     Dates: start: 20111120, end: 20111121

REACTIONS (3)
  - Asthenia [None]
  - Dyspnoea [None]
  - Movement disorder [None]
